FAERS Safety Report 8291305-5 (Version None)
Quarter: 2012Q2

REPORT INFORMATION
  Report Type: 
  Country: None (occurrence: None)
  Receive Date: 20120417
  Receipt Date: 20110718
  Transmission Date: 20120825
  Serious: No
  Sender: FDA-Public Use
  Company Number: US-PFIZER INC-2012018232

PATIENT
  Sex: Female
  Weight: 65.76 kg

DRUGS (2)
  1. WELLBUTRIN [Concomitant]
     Indication: DEPRESSION
     Dosage: OVER ONE YEAR
  2. LO/OVRAL-28 [Suspect]
     Indication: CONTRACEPTION
     Dosage: 1 DF, DAILY; APROXIMATELY ONE MONTH
     Route: 048

REACTIONS (1)
  - URTICARIA [None]
